FAERS Safety Report 4874282-6 (Version None)
Quarter: 2006Q1

REPORT INFORMATION
  Report Type: 
  Country: None (occurrence: None)
  Receive Date: 20060106
  Receipt Date: 20030605
  Transmission Date: 20060701
  Serious: Yes (Hospitalization, Disabling)
  Sender: FDA-Public Use
  Company Number: US-MERCK-0306USA00705

PATIENT
  Age: 50 Year
  Sex: Female
  Weight: 103 kg

DRUGS (13)
  1. VIOXX [Suspect]
     Indication: BACK PAIN
     Route: 048
     Dates: start: 20010430, end: 20010730
  2. VIOXX [Suspect]
     Indication: PAIN IN EXTREMITY
     Route: 048
     Dates: start: 20010430, end: 20010730
  3. SYNTHROID [Concomitant]
     Route: 048
  4. ELAVIL [Concomitant]
     Route: 048
  5. RESTORIL [Concomitant]
     Route: 048
  6. FIORINAL [Concomitant]
     Route: 065
  7. FELODIPINE [Concomitant]
     Route: 065
  8. MAXZIDE [Concomitant]
     Route: 065
  9. LOTENSIN [Concomitant]
     Route: 065
  10. PREMARIN [Concomitant]
     Route: 065
  11. LABETALOL HYDROCHLORIDE [Concomitant]
     Route: 065
  12. FIORICET TABLETS [Concomitant]
     Route: 065
  13. FLEXERIL [Concomitant]
     Route: 065

REACTIONS (36)
  - ABDOMINAL DISTENSION [None]
  - ABDOMINAL MASS [None]
  - ABDOMINAL PANNICULECTOMY [None]
  - ADVERSE EVENT [None]
  - ARRHYTHMIA [None]
  - ATROPHIC VULVOVAGINITIS [None]
  - BACK PAIN [None]
  - BREAST NEOPLASM [None]
  - BRONCHITIS [None]
  - DIVERTICULUM DUODENAL [None]
  - DYSPEPSIA [None]
  - DYSPNOEA EXERTIONAL [None]
  - HAEMORRHOIDS [None]
  - HEADACHE [None]
  - HYPERTENSION [None]
  - HYPOAESTHESIA [None]
  - HYPOVENTILATION [None]
  - INCISION SITE COMPLICATION [None]
  - INTRADUCTAL PAPILLOMA OF BREAST [None]
  - LOBAR PNEUMONIA [None]
  - LUMBAR VERTEBRAL FRACTURE [None]
  - MIGRAINE [None]
  - MUSCLE SPASMS [None]
  - OSTEITIS DEFORMANS [None]
  - PAIN [None]
  - PALPITATIONS [None]
  - PANCREATIC MASS [None]
  - PIRIFORMIS SYNDROME [None]
  - RETROSTERNAL FLUID EVACUATION [None]
  - SLEEP DISORDER [None]
  - TACHYCARDIA [None]
  - TRANSIENT ISCHAEMIC ATTACK [None]
  - ULCER [None]
  - URINARY INCONTINENCE [None]
  - URINARY TRACT INFECTION [None]
  - VISION BLURRED [None]
